FAERS Safety Report 4678851-8 (Version None)
Quarter: 2005Q2

REPORT INFORMATION
  Report Type: 
  Country: None (occurrence: None)
  Receive Date: 20050531
  Receipt Date: 20050516
  Transmission Date: 20051028
  Serious: Yes (Other)
  Sender: FDA-Public Use
  Company Number: 2005076278

PATIENT
  Age: 84 Year
  Sex: Female

DRUGS (4)
  1. CELEBREX [Suspect]
     Indication: NEURALGIA
     Dosage: (200 MG), ORAL
     Route: 048
     Dates: start: 20050401, end: 20050515
  2. LIPITOR [Concomitant]
  3. TOPROL (METOPROLOL) [Concomitant]
  4. COZAAR [Concomitant]

REACTIONS (4)
  - ABDOMINAL PAIN [None]
  - ABDOMINAL PAIN UPPER [None]
  - HIP ARTHROPLASTY [None]
  - SLEEP DISORDER [None]
